FAERS Safety Report 7663408-7 (Version None)
Quarter: 2011Q3

REPORT INFORMATION
  Report Type: 
  Country: None (occurrence: None)
  Receive Date: 20110805
  Receipt Date: 20100810
  Transmission Date: 20111222
  Serious: No
  Sender: FDA-Public Use
  Company Number: US-ABBOTT-10P-163-0638460-00

PATIENT
  Sex: Female
  Weight: 77.18 kg

DRUGS (11)
  1. ACYCLOVIR [Concomitant]
     Indication: HUMAN HERPESVIRUS 6 INFECTION
     Dates: start: 20090601
  2. ASPIRIN [Concomitant]
     Indication: PRODUCT USED FOR UNKNOWN INDICATION
  3. NIASPAN [Suspect]
     Dosage: 1000 MG AT NIGHT
  4. JANUMET [Concomitant]
     Indication: DIABETES MELLITUS
  5. RAMIPRIL [Concomitant]
     Indication: HYPERTENSION
  6. NIASPAN [Suspect]
     Indication: BLOOD CHOLESTEROL INCREASED
     Dosage: 500 MG EVERY NIGHT
     Dates: start: 20100201, end: 20100501
  7. CALCIUM ACETATE [Concomitant]
     Indication: PRODUCT USED FOR UNKNOWN INDICATION
  8. LOVAZA [Concomitant]
     Indication: PRODUCT USED FOR UNKNOWN INDICATION
  9. ACTOS [Concomitant]
     Indication: PRODUCT USED FOR UNKNOWN INDICATION
  10. LEVOTHYROXINE SODIUM [Concomitant]
     Indication: HYPOTHYROIDISM
  11. VITAMIN D [Concomitant]
     Indication: PRODUCT USED FOR UNKNOWN INDICATION

REACTIONS (4)
  - DIARRHOEA [None]
  - PRURITUS [None]
  - BLOOD GLUCOSE INCREASED [None]
  - GLYCOSYLATED HAEMOGLOBIN INCREASED [None]
